FAERS Safety Report 14261620 (Version 6)
Quarter: 2021Q4

REPORT INFORMATION
  Report Type: Report from Study
  Country: DE (occurrence: None)
  Receive Date: 20171208
  Receipt Date: 20211120
  Transmission Date: 20220303
  Serious: Yes (Hospitalization)
  Sender: FDA-Public Use
  Company Number: DE-ROCHE-2031792

PATIENT
  Age: 78 Year
  Sex: Male
  Weight: 80 kg

DRUGS (6)
  1. VEMURAFENIB [Suspect]
     Active Substance: VEMURAFENIB
     Indication: Malignant melanoma
     Dosage: DATE OF LAST DOSE PRIOR TO BOTH SAES: 23/NOV/2017?INTERRUPTED IN RESPONSE TO BOTH SAES
     Route: 048
     Dates: start: 20171122, end: 20171124
  2. COBIMETINIB [Suspect]
     Active Substance: COBIMETINIB
     Indication: Malignant melanoma
     Dosage: DATE OF LAST DOSE PRIOR TO BOTH SAES: 23/NOV/2017?INTERRUPTED ON 24/NOV/2017 IN RESPONSE TO BOTH SAE
     Route: 048
     Dates: start: 20171121, end: 20171124
  3. ATEZOLIZUMAB [Suspect]
     Active Substance: ATEZOLIZUMAB
     Indication: Malignant melanoma
     Dosage: DATE OF LAST DOSE PRIOR TO BOTH SAES: 07/NOV/2017
     Route: 042
     Dates: start: 20170927
  4. MARCUMAR [Concomitant]
     Active Substance: PHENPROCOUMON
     Dates: start: 20171006, end: 20171124
  5. ASPIRIN [Concomitant]
     Active Substance: ASPIRIN
     Dates: start: 20130101
  6. TRANEXAMIC ACID [Concomitant]
     Active Substance: TRANEXAMIC ACID
     Dates: start: 20171124, end: 20171124

REACTIONS (1)
  - Gastric haemorrhage [Not Recovered/Not Resolved]

NARRATIVE: CASE EVENT DATE: 20171124
